FAERS Safety Report 4435843-1 (Version None)
Quarter: 2004Q3

REPORT INFORMATION
  Report Type: 
  Country: None (occurrence: None)
  Receive Date: 20040726
  Receipt Date: 20040414
  Transmission Date: 20050211
  Serious: No
  Sender: FDA-Public Use
  Company Number: USA031253887

PATIENT
  Age: 64 Year
  Sex: Female
  Weight: 43 kg

DRUGS (21)
  1. FORTEO [Suspect]
     Indication: OSTEOPENIA
     Dosage: 20 UG/DAY
     Dates: start: 20031203
  2. FORTEO [Suspect]
     Indication: OSTEOPOROSIS
     Dosage: 20 UG/DAY
     Dates: start: 20031203
  3. ADVAIR DISKUS 100/50 [Concomitant]
  4. FLOVENT [Concomitant]
  5. TEQUIN [Concomitant]
  6. EFFEXOR [Concomitant]
  7. MULTIVITAMIN [Concomitant]
  8. CALCIUM [Concomitant]
  9. ACCOLATE [Concomitant]
  10. PROVENTIL [Concomitant]
  11. ATROVENT [Concomitant]
  12. ENTEX CAP [Concomitant]
  13. COMBIVENT [Concomitant]
  14. VALIUM [Concomitant]
  15. VALTREX [Concomitant]
  16. VOLMAX [Concomitant]
  17. OXYGEN [Concomitant]
  18. MIACALCIN [Concomitant]
  19. ACTONEL [Concomitant]
  20. NASONEX [Concomitant]
  21. AMI-TEX LA [Concomitant]

REACTIONS (20)
  - ABDOMINAL PAIN LOWER [None]
  - ARTHRALGIA [None]
  - ASTHENIA [None]
  - ASTHMA [None]
  - CHILLS [None]
  - COUGH [None]
  - DIZZINESS [None]
  - DYSPNOEA [None]
  - EMPHYSEMA [None]
  - FATIGUE [None]
  - FEAR [None]
  - INFLUENZA [None]
  - INJECTION SITE BURNING [None]
  - INJECTION SITE PAIN [None]
  - MUSCLE CRAMP [None]
  - NAUSEA [None]
  - NERVOUSNESS [None]
  - POSTNASAL DRIP [None]
  - RESPIRATORY TRACT CONGESTION [None]
  - SOMNOLENCE [None]
